FAERS Safety Report 7444593-9 (Version None)
Quarter: 2011Q2

REPORT INFORMATION
  Report Type: 
  Country: None (occurrence: None)
  Receive Date: 20110427
  Receipt Date: 20110427
  Transmission Date: 20111010
  Serious: Yes (Other)
  Sender: FDA-Public Use
  Company Number: None

PATIENT
  Age: 30 Year
  Sex: Female
  Weight: 88.4514 kg

DRUGS (2)
  1. SUBOXONE [Suspect]
     Indication: DRUG DEPENDENCE
     Dosage: 2MG-.5MG Q. D SL
     Route: 060
  2. SUBOXONE [Suspect]
     Indication: PAIN
     Dosage: 4MG-1MG BID SL
     Route: 060
     Dates: start: 20100801, end: 20110426

REACTIONS (16)
  - SOMNOLENCE [None]
  - PAIN [None]
  - HYPERHIDROSIS [None]
  - WITHDRAWAL SYNDROME [None]
  - DEPRESSION [None]
  - TOOTHACHE [None]
  - WEIGHT INCREASED [None]
  - DIZZINESS [None]
  - LACRIMATION INCREASED [None]
  - VASODILATION PROCEDURE [None]
  - ORAL PAIN [None]
  - MIGRAINE [None]
  - PHOTOPHOBIA [None]
  - OEDEMA PERIPHERAL [None]
  - YAWNING [None]
  - TOXICITY TO VARIOUS AGENTS [None]
